FAERS Safety Report 4625589-9 (Version None)
Quarter: 2005Q1

REPORT INFORMATION
  Report Type: 
  Country: None (occurrence: None)
  Receive Date: 20050331
  Receipt Date: 20050331
  Transmission Date: 20050727
  Serious: No
  Sender: FDA-Public Use
  Company Number: None

PATIENT
  Age: 73 Year
  Sex: Male
  Weight: 48.0813 kg

DRUGS (5)
  1. TRAMADOL  50MG [Suspect]
     Indication: ARTHRALGIA
     Dosage: 1 TABLET PO QID
     Route: 048
     Dates: start: 20050325, end: 20050328
  2. PROTONIX [Concomitant]
  3. LORAZEPAM [Concomitant]
  4. MOEXIPRIL HCL [Concomitant]
  5. ALLEGRA [Concomitant]

REACTIONS (3)
  - PAIN [None]
  - PHARMACEUTICAL PRODUCT COMPLAINT [None]
  - TOOTHACHE [None]
